FAERS Safety Report 5703593-7 (Version None)
Quarter: 2008Q2

REPORT INFORMATION
  Report Type: 
  Country: None (occurrence: None)
  Receive Date: 20080411
  Receipt Date: 20080403
  Transmission Date: 20081010
  Serious: Yes (Death)
  Sender: FDA-Public Use
  Company Number: US-ABBOTT-08P-163-0445258-00

PATIENT
  Age: 90 Year
  Sex: Female

DRUGS (1)
  1. SYNTHROID [Suspect]
     Indication: DRUG USE FOR UNKNOWN INDICATION

REACTIONS (1)
  - MYOCARDIAL INFARCTION [None]
